FAERS Safety Report 13542755 (Version 1)
Quarter: 2017Q2

REPORT INFORMATION
  Report Type: Spontaneous
  Country: US (occurrence: US)
  Receive Date: 20170512
  Receipt Date: 20170512
  Transmission Date: 20170830
  Serious: No
  Sender: FDA-Public Use
  Company Number: US-ROCHE-800744

PATIENT
  Sex: Male
  Weight: 63.5 kg

DRUGS (1)
  1. AVASTIN [Suspect]
     Active Substance: BEVACIZUMAB
     Indication: MACULAR DEGENERATION
     Route: 042

REACTIONS (3)
  - Drug ineffective [Unknown]
  - Anxiety [Unknown]
  - Blood pressure increased [Unknown]
